FAERS Safety Report 5107266-3 (Version None)
Quarter: 2006Q3

REPORT INFORMATION
  Report Type: 
  Country: None (occurrence: None)
  Receive Date: 20060914
  Receipt Date: 20060905
  Transmission Date: 20061208
  Serious: Yes (Hospitalization)
  Sender: FDA-Public Use
  Company Number: S06-USA-03548-01

PATIENT
  Age: 65 Year
  Sex: Female

DRUGS (2)
  1. LEXAPRO [Suspect]
     Indication: DRUG USE FOR UNKNOWN INDICATION
     Dosage: 10 MG QD PO
     Route: 048
  2. MULTIPLE (NOS) [Concomitant]

REACTIONS (2)
  - CEREBRAL ATROPHY [None]
  - MENTAL STATUS CHANGES [None]
